FAERS Safety Report 18443110 (Version 3)
Quarter: 2021Q1

REPORT INFORMATION
  Report Type: Report from Study
  Country: US (occurrence: US)
  Receive Date: 20201029
  Receipt Date: 20210316
  Transmission Date: 20210419
  Serious: No
  Sender: FDA-Public Use
  Company Number: NVSC2020US290845

PATIENT
  Sex: Male

DRUGS (1)
  1. ENTRESTO [Suspect]
     Active Substance: SACUBITRIL\VALSARTAN
     Indication: PRODUCT USED FOR UNKNOWN INDICATION
     Dosage: UNK UNK, BID
     Route: 048
     Dates: start: 2019

REACTIONS (5)
  - Blood glucose abnormal [Unknown]
  - Dehydration [Unknown]
  - Ultrasound Doppler [Unknown]
  - Weight fluctuation [Unknown]
  - Weight decreased [Unknown]
